FAERS Safety Report 8618380 (Version 2)
Quarter: 2013Q1

REPORT INFORMATION
  Report Type: Report from Study
  Country: JP (occurrence: JP)
  Receive Date: 20120616
  Receipt Date: 20130123
  Transmission Date: 20140127
  Serious: Yes (Other)
  Sender: FDA-Public Use
  Company Number: JP-VERTEX PHARMACEUTICALS INC.-AE-2012-008503

PATIENT
  Age: 68 Year
  Sex: Male

DRUGS (6)
  1. VX-950 (TELAPREVIR) [Suspect]
     Indication: HEPATITIS C
     Dosage: 2250 MG, UNK
     Route: 048
     Dates: start: 20120418, end: 20120423
  2. REBETOL [Suspect]
     Indication: CHRONIC HEPATITIS C
     Route: 048
     Dates: start: 20120418, end: 20120423
  3. PEGINTERFERON ALFA-2B [Suspect]
     Indication: CHRONIC HEPATITIS C
     Dosage: 1.33 ?G/KG, UNK
     Route: 051
     Dates: start: 20120418, end: 20120418
  4. FASTIC [Concomitant]
     Route: 048
  5. LOCHOL [Concomitant]
     Dosage: 20 MG, UNK
     Route: 048
  6. ALFAROL [Concomitant]
     Dosage: 0.75 MG, UNK
     Route: 048

REACTIONS (1)
  - Rash [Recovered/Resolved]
